FAERS Safety Report 5537101-0 (Version None)
Quarter: 2007Q4

REPORT INFORMATION
  Report Type: 
  Country: None (occurrence: None)
  Receive Date: 20071204
  Receipt Date: 20071113
  Transmission Date: 20080405
  Serious: Yes (Death)
  Sender: FDA-Public Use
  Company Number: IN200711002807

PATIENT
  Age: 67 Year
  Sex: Male
  Weight: 47 kg

DRUGS (6)
  1. ETOPOSIDE [Suspect]
     Indication: SMALL CELL LUNG CANCER EXTENSIVE STAGE
     Dosage: 144 MG, DAY 1,2 AND 3 OF 21 DAY CYCLE INTRAVENOUS
     Route: 042
     Dates: start: 20071026
  2. AMLODIPINE BESYLATE [Concomitant]
  3. LORAZEPAM [Concomitant]
  4. RABEPRAZOLE SODIUM [Concomitant]
  5. DOMPERIDONE (DOMPERIDONE) [Concomitant]
  6. TAMSULOSIN HCL [Concomitant]

REACTIONS (2)
  - FEBRILE NEUTROPENIA [None]
  - SEPSIS [None]
